FAERS Safety Report 8379476-3 (Version None)
Quarter: 2012Q2

REPORT INFORMATION
  Report Type: 
  Country: None (occurrence: None)
  Receive Date: 20120523
  Receipt Date: 20120511
  Transmission Date: 20120825
  Serious: Yes (Hospitalization, Other)
  Sender: FDA-Public Use
  Company Number: US-JNJFOC-20120512361

PATIENT
  Sex: Female
  Weight: 83.01 kg

DRUGS (7)
  1. REMICADE [Suspect]
     Indication: PSORIATIC ARTHROPATHY
     Route: 042
     Dates: start: 20111001
  2. REMICADE [Suspect]
     Route: 042
     Dates: start: 20110401, end: 20110901
  3. LASIX [Concomitant]
     Indication: PHLEBITIS
     Route: 048
     Dates: start: 19920101, end: 20110901
  4. GLUCOPHAGE [Concomitant]
     Indication: DIABETES MELLITUS
     Route: 048
     Dates: start: 19920101
  5. REMICADE [Suspect]
     Indication: RHEUMATOID ARTHRITIS
     Route: 042
     Dates: start: 20111001
  6. REMICADE [Suspect]
     Route: 042
     Dates: start: 20110401, end: 20110901
  7. VANCOMYCIN [Suspect]
     Indication: DIABETIC FOOT
     Route: 042
     Dates: start: 20111101, end: 20120101

REACTIONS (5)
  - OSTEOMYELITIS [None]
  - PHLEBITIS [None]
  - DIABETIC FOOT [None]
  - WEIGHT FLUCTUATION [None]
  - DIABETIC COMA [None]
